FAERS Safety Report 7496623-6 (Version None)
Quarter: 2011Q2

REPORT INFORMATION
  Report Type: 
  Country: None (occurrence: None)
  Receive Date: 20110520
  Receipt Date: 20110520
  Transmission Date: 20111010
  Serious: Yes (Hospitalization, Other)
  Sender: FDA-Public Use
  Company Number: None

PATIENT
  Sex: Female
  Weight: 108.8633 kg

DRUGS (1)
  1. NITROFURANTOIN [Suspect]
     Indication: URINARY TRACT INFECTION
     Dosage: 1 CAPSULE TWICE A DAY PO
     Route: 048
     Dates: start: 20110505, end: 20110507

REACTIONS (5)
  - URINARY RETENTION [None]
  - HYPOAESTHESIA [None]
  - PARAESTHESIA [None]
  - NERVOUS SYSTEM DISORDER [None]
  - HERPES ZOSTER [None]
